FAERS Safety Report 10067290 (Version 1)
Quarter: 2014Q2

REPORT INFORMATION
  Report Type: Spontaneous
  Country: US (occurrence: None)
  Receive Date: 20140408
  Receipt Date: 20140408
  Transmission Date: 20141212
  Serious: Yes (Death)
  Sender: FDA-Public Use
  Company Number: None

PATIENT
  Age: 76 Year
  Sex: Male
  Weight: 77.11 kg

DRUGS (5)
  1. METRONIDAZOLE [Suspect]
     Indication: ESCHERICHIA TEST POSITIVE
  2. METRONIDAZOLE [Suspect]
     Indication: BACTERIAL TEST POSITIVE
  3. IMURAN [Concomitant]
  4. PREDNISONE [Concomitant]
  5. METRONIDAZOLE [Concomitant]

REACTIONS (4)
  - Haemorrhagic stroke [None]
  - Platelet count decreased [None]
  - No therapeutic response [None]
  - Fungal sepsis [None]
